FAERS Safety Report 4695528-3 (Version None)
Quarter: 2005Q2

REPORT INFORMATION
  Report Type: 
  Country: None (occurrence: None)
  Receive Date: 20050620
  Receipt Date: 20050620
  Transmission Date: 20051028
  Serious: No
  Sender: FDA-Public Use
  Company Number: None

PATIENT
  Sex: Male
  Weight: 127 kg

DRUGS (11)
  1. METHYLPHENIDATE   20MG     MALLINKRODT [Suspect]
     Indication: ATTENTION DEFICIT/HYPERACTIVITY DISORDER
     Dosage: 20MG    TID   ORAL
     Route: 048
     Dates: start: 20041109, end: 20050121
  2. CONCERTA [Suspect]
     Indication: ATTENTION DEFICIT/HYPERACTIVITY DISORDER
     Dosage: 54MG  BID   ORAL
     Route: 048
     Dates: start: 20050121, end: 20050325
  3. MOTRIN [Concomitant]
  4. NASALIDE [Concomitant]
  5. VIT B COMPLEX [Concomitant]
  6. PAXIL [Concomitant]
  7. ROBITUSSIN [Concomitant]
  8. ATACAND [Concomitant]
  9. GLIPIZIDE [Concomitant]
  10. CTM [Concomitant]
  11. IMODIUM [Concomitant]

REACTIONS (4)
  - ACARODERMATITIS [None]
  - BACTERIAL INFECTION [None]
  - OBSESSIVE-COMPULSIVE DISORDER [None]
  - RASH PAPULAR [None]
